FAERS Safety Report 18330468 (Version 1)
Quarter: 2020Q3

REPORT INFORMATION
  Report Type: Spontaneous
  Country: RU (occurrence: RU)
  Receive Date: 20200930
  Receipt Date: 20200930
  Transmission Date: 20201103
  Serious: Yes (Hospitalization, Other)
  Sender: FDA-Public Use
  Company Number: RU-BAYER-2020-203502

PATIENT
  Age: 30 Year
  Sex: Female

DRUGS (3)
  1. ZOELY [Suspect]
     Active Substance: ESTRADIOL\NOMEGESTROL ACETATE
     Indication: CONTRACEPTION
     Dosage: UNK
     Route: 048
     Dates: start: 202006
  2. YAZ [Suspect]
     Active Substance: DROSPIRENONE\ETHINYL ESTRADIOL
     Indication: ACNE
     Dosage: UNK
     Route: 048
     Dates: start: 201911, end: 202006
  3. YAZ [Suspect]
     Active Substance: DROSPIRENONE\ETHINYL ESTRADIOL
     Indication: CONTRACEPTION

REACTIONS (7)
  - Pulmonary embolism [Recovered/Resolved]
  - Antiphospholipid antibodies positive [None]
  - Antiphospholipid syndrome [None]
  - Deep vein thrombosis [None]
  - Irritability [None]
  - Aggression [None]
  - Dyspnoea [Recovered/Resolved]

NARRATIVE: CASE EVENT DATE: 202006
